FAERS Safety Report 9705650 (Version 1)
Quarter: 2013Q4

REPORT INFORMATION
  Report Type: Spontaneous
  Country: US (occurrence: US)
  Receive Date: 20131122
  Receipt Date: 20131122
  Transmission Date: 20140711
  Serious: No
  Sender: FDA-Public Use
  Company Number: US-GILEAD-2008-0017527

PATIENT
  Age: 75 Year
  Sex: Female

DRUGS (6)
  1. LETAIRIS [Suspect]
     Indication: PULMONARY FIBROSIS
     Route: 048
     Dates: start: 20080707
  2. DIOVAN [Concomitant]
     Route: 048
  3. LASIX [Concomitant]
     Route: 048
  4. TYLENOL [Concomitant]
     Route: 048
  5. FOSAMAX [Concomitant]
     Route: 048
  6. KLOR-CON M20 [Concomitant]
     Route: 048

REACTIONS (1)
  - Local swelling [Not Recovered/Not Resolved]
